FAERS Safety Report 5347483-0 (Version None)
Quarter: 2007Q2

REPORT INFORMATION
  Report Type: 
  Country: None (occurrence: None)
  Receive Date: 20070606
  Receipt Date: 20070524
  Transmission Date: 20071010
  Serious: Yes (Other)
  Sender: FDA-Public Use
  Company Number: PHBS2007IN08719

PATIENT
  Sex: Female
  Weight: 2.95 kg

DRUGS (2)
  1. CLOZAPINE [Suspect]
     Route: 064
  2. CLOZAPINE [Suspect]

REACTIONS (4)
  - DRUG EXPOSURE DURING PREGNANCY [None]
  - DRUG EXPOSURE VIA BREAST MILK [None]
  - DYSPHEMIA [None]
  - SPEECH DISORDER DEVELOPMENTAL [None]
